FAERS Safety Report 16070189 (Version 1)
Quarter: 2019Q1

REPORT INFORMATION
  Report Type: Spontaneous
  Country: US (occurrence: US)
  Receive Date: 20190314
  Receipt Date: 20190314
  Transmission Date: 20190418
  Serious: Yes (Other)
  Sender: FDA-Public Use
  Company Number: US-ACCORD-111692

PATIENT
  Age: 59 Year
  Sex: Female

DRUGS (2)
  1. SPIRONOLACTONE ACCORD [Suspect]
     Active Substance: SPIRONOLACTONE
     Indication: HYPERTENSION
     Dosage: STRENGTH: 25 MG
     Route: 048
     Dates: start: 20190219
  2. HYDROCHLOROTHIAZIDE ACCORD [Suspect]
     Active Substance: HYDROCHLOROTHIAZIDE
     Indication: HYPERTENSION
     Dosage: STRENGTH: 25 MG?DOSE 25 MG AND REDUCED TO 12.5 MG
     Route: 048
     Dates: start: 2016, end: 201809

REACTIONS (12)
  - Tachycardia [Unknown]
  - Limb crushing injury [Unknown]
  - Back injury [Unknown]
  - Condition aggravated [Not Recovered/Not Resolved]
  - Loss of consciousness [Unknown]
  - Dehydration [Unknown]
  - Dizziness [Unknown]
  - Mineral deficiency [Unknown]
  - Skin injury [Unknown]
  - Fall [Unknown]
  - Joint injury [Unknown]
  - Post-traumatic neck syndrome [Unknown]

NARRATIVE: CASE EVENT DATE: 201604
